FAERS Safety Report 8483239-8 (Version None)
Quarter: 2012Q3

REPORT INFORMATION
  Report Type: 
  Country: None (occurrence: None)
  Receive Date: 20120702
  Receipt Date: 20120628
  Transmission Date: 20120928
  Serious: Yes (Life-Threatening, Other)
  Sender: FDA-Public Use
  Company Number: BR-ABBOTT-12P-020-0951775-00

PATIENT
  Sex: Male
  Weight: 143 kg

DRUGS (1)
  1. DEPAKOTE ER [Suspect]
     Indication: EPILEPSY
     Route: 048
     Dates: end: 20120601

REACTIONS (2)
  - HEPATIC STEATOSIS [None]
  - VOMITING [None]
